FAERS Safety Report 7103886-5 (Version None)
Quarter: 2010Q4

REPORT INFORMATION
  Report Type: 
  Country: None (occurrence: None)
  Receive Date: 20101115
  Receipt Date: 20101105
  Transmission Date: 20110411
  Serious: Yes (Disabling)
  Sender: FDA-Public Use
  Company Number: PHHY2010JP68197

PATIENT
  Sex: Female
  Weight: 54 kg

DRUGS (4)
  1. ZOMETA [Suspect]
     Indication: METASTASES TO BONE
     Dosage: 4 MG MONTHLY
     Route: 041
     Dates: start: 20081105, end: 20100907
  2. ARIMIDEX [Concomitant]
     Dosage: 1 MG
     Route: 048
     Dates: start: 20091202
  3. FAMOTIDINE [Concomitant]
     Dosage: UNK
     Route: 048
     Dates: start: 20091121
  4. MORPHINE HYDROCHLORIDE [Concomitant]
     Dosage: UNK
     Route: 048
     Dates: start: 20090713

REACTIONS (4)
  - ALVEOLAR OSTEITIS [None]
  - IMPAIRED HEALING [None]
  - OSTEONECROSIS OF JAW [None]
  - TOOTH EXTRACTION [None]
